FAERS Safety Report 19860228 (Version 1)
Quarter: 2021Q3

REPORT INFORMATION
  Report Type: Spontaneous
  Country: US (occurrence: US)
  Receive Date: 20210920
  Receipt Date: 20210920
  Transmission Date: 20211014
  Serious: Yes (Other)
  Sender: FDA-Public Use
  Company Number: US-TEVA-2021-US-1956215

PATIENT
  Sex: Female

DRUGS (3)
  1. LENVIMA [Suspect]
     Active Substance: LENVATINIB
     Indication: ENDOMETRIAL CANCER
     Route: 065
     Dates: start: 20210607
  2. LISINOPRIL. [Suspect]
     Active Substance: LISINOPRIL
     Route: 065
  3. LENVIMA [Suspect]
     Active Substance: LENVATINIB
     Route: 065
     Dates: start: 20210719

REACTIONS (7)
  - Pruritus [Unknown]
  - Nasal congestion [Unknown]
  - Rash [Unknown]
  - Peripheral swelling [Unknown]
  - Hypersensitivity [Unknown]
  - Chest discomfort [Unknown]
  - Angioedema [Unknown]
